FAERS Safety Report 7480541-3 (Version None)
Quarter: 2011Q2

REPORT INFORMATION
  Report Type: 
  Country: None (occurrence: None)
  Receive Date: 20110516
  Receipt Date: 20110504
  Transmission Date: 20111010
  Serious: No
  Sender: FDA-Public Use
  Company Number: US-BIOGENIDEC-2011BI017051

PATIENT
  Sex: Female

DRUGS (2)
  1. AVONEX [Suspect]
     Indication: MULTIPLE SCLEROSIS
     Route: 030
     Dates: start: 20040101, end: 20110101
  2. ACETAMINOPHEN [Concomitant]
     Indication: PREMEDICATION

REACTIONS (6)
  - HYPOTENSION [None]
  - NIGHT SWEATS [None]
  - INFLUENZA LIKE ILLNESS [None]
  - HEART RATE DECREASED [None]
  - FEAR [None]
  - MUSCLE ATROPHY [None]
